FAERS Safety Report 6203945-5 (Version None)
Quarter: 2009Q2

REPORT INFORMATION
  Report Type: 
  Country: None (occurrence: None)
  Receive Date: 20090527
  Receipt Date: 20090515
  Transmission Date: 20091009
  Serious: Yes (Death, Hospitalization)
  Sender: FDA-Public Use
  Company Number: A0785984A

PATIENT
  Sex: Female
  Weight: 136.4 kg

DRUGS (3)
  1. AVANDIA [Suspect]
     Dosage: 4MG PER DAY
     Route: 048
     Dates: start: 20050711, end: 20070310
  2. ATENOLOL [Concomitant]
  3. NITROGLYCERIN [Concomitant]
     Dates: start: 19860101

REACTIONS (4)
  - DEATH [None]
  - MYOCARDIAL INFARCTION [None]
  - OEDEMA [None]
  - WEIGHT INCREASED [None]
